FAERS Safety Report 12205364 (Version 1)
Quarter: 2016Q1

REPORT INFORMATION
  Report Type: Spontaneous
  Country: US (occurrence: US)
  Receive Date: 20160323
  Receipt Date: 20160323
  Transmission Date: 20160526
  Serious: Yes (Other)
  Sender: FDA-Public Use
  Company Number: US-PRESTIGE BRANDS -1049522

PATIENT
  Age: 50 Year
  Sex: Female

DRUGS (1)
  1. DIABET AID [Suspect]
     Active Substance: CAPSICUM OLEORESIN
     Indication: DRY SKIN
     Route: 061

REACTIONS (3)
  - Skin burning sensation [Recovered/Resolved]
  - Blister [Recovered/Resolved]
  - Skin discolouration [Not Recovered/Not Resolved]
